FAERS Safety Report 19959241 (Version 1)
Quarter: 2021Q4

REPORT INFORMATION
  Report Type: Spontaneous
  Country: US (occurrence: US)
  Receive Date: 20211013
  Receipt Date: 20211013
  Transmission Date: 20220303
  Serious: No
  Sender: FDA-Public Use
  Company Number: None

PATIENT
  Sex: Male

DRUGS (1)
  1. ENTYVIO [Suspect]
     Active Substance: VEDOLIZUMAB
     Indication: Colitis ulcerative
     Dosage: ?          OTHER STRENGTH:300MG/VL; INFUSE 300 MG INTRAVENOUSLY OVER 30 MINUTES AT WEEKS 0,2 AND 6 T
     Route: 042
     Dates: start: 202107

REACTIONS (1)
  - Nonspecific reaction [None]
